FAERS Safety Report 25800626 (Version 1)
Quarter: 2025Q3

REPORT INFORMATION
  Report Type: Report from Study
  Country: US (occurrence: US)
  Receive Date: 20250915
  Receipt Date: 20250915
  Transmission Date: 20251020
  Serious: Yes (Other)
  Sender: ALEXION PHARMACEUTICALS
  Company Number: US-AstraZeneca-CH-00931728A

PATIENT
  Age: 67 Year
  Sex: Female
  Weight: 95.21 kg

DRUGS (2)
  1. DAPAGLIFLOZIN [Suspect]
     Active Substance: DAPAGLIFLOZIN
     Route: 065
  2. METOPROLOL TARTRATE [Concomitant]
     Active Substance: METOPROLOL TARTRATE

REACTIONS (14)
  - Neuropathy peripheral [Unknown]
  - Lymphadenopathy [Unknown]
  - Peripheral swelling [Unknown]
  - Pain in extremity [Unknown]
  - Hypotension [Unknown]
  - Pain [Unknown]
  - Weight increased [Unknown]
  - Back pain [Unknown]
  - Peripheral swelling [Unknown]
  - Paraesthesia [Unknown]
  - Oedema [Unknown]
  - Swelling [Unknown]
  - Fungal infection [Unknown]
  - Hypoaesthesia [Unknown]
